FAERS Safety Report 8127756-9 (Version None)
Quarter: 2011Q4

REPORT INFORMATION
  Report Type: 
  Country: None (occurrence: None)
  Receive Date: 20111230
  Receipt Date: 20110927
  Transmission Date: 20120403
  Serious: Yes (Other)
  Sender: FDA-Public Use
  Company Number: 302681USA

PATIENT
  Age: 54 Year
  Sex: Male

DRUGS (2)
  1. AMIODARONE HCL [Suspect]
     Indication: CARDIAC ASSISTANCE DEVICE USER
     Dosage: 200 MG (200 MG,1 IN 1 D)
     Dates: start: 20110625, end: 20110915
  2. AMIODARONE HCL [Suspect]
     Indication: CARDIAC FAILURE CONGESTIVE
     Dosage: 200 MG (200 MG,1 IN 1 D)
     Dates: start: 20110625, end: 20110915

REACTIONS (2)
  - CARDIAC FAILURE CONGESTIVE [None]
  - EXTRASYSTOLES [None]
